FAERS Safety Report 19889720 (Version 1)
Quarter: 2021Q3

REPORT INFORMATION
  Report Type: Spontaneous
  Country: US (occurrence: US)
  Receive Date: 20210928
  Receipt Date: 20210928
  Transmission Date: 20211014
  Serious: Yes (Other)
  Sender: FDA-Public Use
  Company Number: None

PATIENT
  Age: 17 Year
  Sex: Male
  Weight: 72 kg

DRUGS (14)
  1. GENOTROPIN [Concomitant]
     Active Substance: SOMATROPIN
  2. FISH OIL [Concomitant]
     Active Substance: FISH OIL
  3. VITAMIN B [Concomitant]
     Active Substance: VITAMIN B
  4. VITAMIN C [Concomitant]
     Active Substance: ASCORBIC ACID
  5. CALCIUM + VITAMIN D [Concomitant]
     Active Substance: CALCIUM\VITAMIN D
  6. CLONIDINE. [Concomitant]
     Active Substance: CLONIDINE
  7. DEPAKOTE [Concomitant]
     Active Substance: DIVALPROEX SODIUM
  8. RETIN?A [Concomitant]
     Active Substance: TRETINOIN
  9. ZOLOFT [Concomitant]
     Active Substance: SERTRALINE HYDROCHLORIDE
  10. VITAMIN A [Concomitant]
     Active Substance: VITAMIN A
  11. JORNAY PM EXTENDED?RELEASE [Suspect]
     Active Substance: METHYLPHENIDATE HYDROCHLORIDE
     Indication: ATTENTION DEFICIT HYPERACTIVITY DISORDER
     Dosage: ?          QUANTITY:1 CAPSULE(S);?
     Route: 048
     Dates: start: 20210708, end: 20210918
  12. TRILEPTAL [Concomitant]
     Active Substance: OXCARBAZEPINE
  13. ABILIFY [Concomitant]
     Active Substance: ARIPIPRAZOLE
  14. ZOLOFT [Concomitant]
     Active Substance: SERTRALINE HYDROCHLORIDE

REACTIONS (4)
  - Hallucinations, mixed [None]
  - Insomnia [None]
  - Non-24-hour sleep-wake disorder [None]
  - Decreased appetite [None]

NARRATIVE: CASE EVENT DATE: 20210731
